FAERS Safety Report 8528374-0 (Version None)
Quarter: 2012Q3

REPORT INFORMATION
  Report Type: 
  Country: None (occurrence: None)
  Receive Date: 20120722
  Receipt Date: 20120713
  Transmission Date: 20120928
  Serious: Yes (Other)
  Sender: FDA-Public Use
  Company Number: DE-UCBSA-061754

PATIENT
  Age: 24 Day
  Sex: Female

DRUGS (1)
  1. KEPPRA [Suspect]
     Indication: CONVULSION
     Dosage: FROM DAY 19 OF LIFE
     Route: 048
     Dates: start: 20111115, end: 20111221

REACTIONS (1)
  - CHOLESTASIS [None]
